FAERS Safety Report 15425667 (Version 3)
Quarter: 2018Q4

REPORT INFORMATION
  Report Type: Report from Study
  Country: PT (occurrence: PT)
  Receive Date: 20180925
  Receipt Date: 20181129
  Transmission Date: 20190204
  Serious: Yes (Life-Threatening, Other)
  Sender: FDA-Public Use
  Company Number: PT-ELI_LILLY_AND_COMPANY-PT201809009707

PATIENT
  Age: 26 Year
  Sex: Male

DRUGS (31)
  1. OLANZAPINE. [Suspect]
     Active Substance: OLANZAPINE
     Indication: HIV INFECTION
     Dosage: UNK UNK, UNKNOWN
     Route: 065
  2. STAVUDINE. [Suspect]
     Active Substance: STAVUDINE
     Indication: HEPATITIS C
     Dosage: UNK UNK, UNKNOWN (1 ML OF TRIAMCINOLONE 40 MG INJECTED)
     Route: 048
  3. DIDANOSINE. [Suspect]
     Active Substance: DIDANOSINE
     Indication: CHRONIC HEPATITIS C
     Dosage: UNK UNK, UNKNOWN
     Route: 065
  4. RISPERIDONE. [Suspect]
     Active Substance: RISPERIDONE
     Indication: CHRONIC HEPATITIS C
     Dosage: UNK UNK, UNKNOWN
     Route: 065
  5. BIPERIDEN [Suspect]
     Active Substance: BIPERIDEN
     Indication: CHRONIC HEPATITIS C
     Dosage: UNK UNK, UNKNOWN
     Route: 065
  6. CYAMEMAZINE [Suspect]
     Active Substance: CYAMEMAZINE
     Indication: CHRONIC HEPATITIS C
     Dosage: UNK UNK, UNKNOWN
     Route: 048
  7. RISPERIDONE. [Suspect]
     Active Substance: RISPERIDONE
     Indication: HIV INFECTION
     Dosage: UNK UNK, UNKNOWN
     Route: 065
  8. METHADONE HYDROCHLORIDE. [Suspect]
     Active Substance: METHADONE HYDROCHLORIDE
     Indication: HEPATITIS C
     Dosage: UNK UNK, UNKNOWN (1 ML OF TRIAMCINOLONE 40 MG INJECTED)
     Route: 065
  9. OLANZAPINE. [Suspect]
     Active Substance: OLANZAPINE
     Indication: HEPATITIS C
     Dosage: UNK UNK, UNKNOWN (1 ML OF TRIAMCINOLONE 40 MG INJECTED)
     Route: 065
  10. DIDANOSINE. [Suspect]
     Active Substance: DIDANOSINE
     Dosage: UNK
     Route: 048
  11. BIPERIDEN [Suspect]
     Active Substance: BIPERIDEN
     Indication: HEPATITIS C
     Dosage: UNK UNK, UNKNOWN (1 ML OF TRIAMCINOLONE 40 MG INJECTED)
     Route: 048
  12. METHADONE HYDROCHLORIDE. [Suspect]
     Active Substance: METHADONE HYDROCHLORIDE
     Indication: CHRONIC HEPATITIS C
     Dosage: UNK UNK, UNKNOWN
     Route: 065
  13. OLANZAPINE. [Suspect]
     Active Substance: OLANZAPINE
     Indication: CHRONIC HEPATITIS C
     Dosage: UNK UNK, UNKNOWN
     Route: 048
  14. TIAPRIDE [Suspect]
     Active Substance: TIAPRIDE
     Indication: HEPATITIS C
     Dosage: UNK UNK, UNKNOWN (1 ML OF TRIAMCINOLONE 40 MG INJECTED)
     Route: 065
  15. TIAPRIDE [Suspect]
     Active Substance: TIAPRIDE
     Indication: HIV INFECTION
     Dosage: UNK UNK, UNKNOWN
     Route: 065
  16. STAVUDINE. [Suspect]
     Active Substance: STAVUDINE
     Indication: HIV INFECTION
     Dosage: UNK UNK, UNKNOWN
     Route: 065
  17. LOPINAVIR + RITONAVIR [Suspect]
     Active Substance: LOPINAVIR\RITONAVIR
     Indication: HEPATITIS C
     Dosage: UNK UNK, UNKNOWN (1 ML OF TRIAMCINOLONE 40 MG INJECTED)
     Route: 065
  18. CYAMEMAZINE [Suspect]
     Active Substance: CYAMEMAZINE
     Indication: HIV INFECTION
     Dosage: UNK UNK, UNKNOWN
     Route: 065
  19. LOPINAVIR + RITONAVIR [Suspect]
     Active Substance: LOPINAVIR\RITONAVIR
     Indication: CHRONIC HEPATITIS C
     Dosage: UNK UNK, UNKNOWN
     Route: 065
  20. LOPINAVIR + RITONAVIR [Suspect]
     Active Substance: LOPINAVIR\RITONAVIR
     Indication: HIV INFECTION
     Dosage: UNK UNK, UNKNOWN
     Route: 048
  21. TIAPRIDE [Suspect]
     Active Substance: TIAPRIDE
     Indication: CHRONIC HEPATITIS C
     Dosage: UNK UNK, UNKNOWN
     Route: 065
  22. CLOXAZOLAM [Suspect]
     Active Substance: CLOXAZOLAM
     Indication: HEPATITIS C
     Dosage: UNK UNK, OTHER (1 ML OF TRIAMCINOLONE 40 MG INJECTED)
     Route: 065
  23. DIDANOSINE. [Suspect]
     Active Substance: DIDANOSINE
     Indication: HEPATITIS C
     Dosage: UNK UNK, UNKNOWN (1 ML OF TRIAMCINOLONE 40 MG INJECTED)
     Route: 065
  24. RISPERIDONE. [Suspect]
     Active Substance: RISPERIDONE
     Indication: HEPATITIS C
     Dosage: UNK UNK, UNKNOWN (1 ML OF TRIAMCINOLONE 40 MG INJECTED)
     Route: 048
  25. CYAMEMAZINE [Suspect]
     Active Substance: CYAMEMAZINE
     Indication: HEPATITIS C
     Dosage: UNK UNK, UNKNOWN (1 ML OF TRIAMCINOLONE 40 MG INJECTED)
     Route: 065
  26. CLOXAZOLAM [Suspect]
     Active Substance: CLOXAZOLAM
     Indication: CHRONIC HEPATITIS C
     Dosage: UNK UNK, UNKNOWN
     Route: 048
  27. CLOXAZOLAM [Suspect]
     Active Substance: CLOXAZOLAM
     Indication: HIV INFECTION
     Dosage: UNK UNK, UNKNOWN
     Route: 065
  28. DIDANOSINE. [Suspect]
     Active Substance: DIDANOSINE
     Indication: HIV INFECTION
     Dosage: UNK UNK, UNKNOWN
     Route: 065
  29. BIPERIDEN [Suspect]
     Active Substance: BIPERIDEN
     Indication: HIV INFECTION
     Dosage: UNK UNK, UNKNOWN
     Route: 065
  30. STAVUDINE. [Suspect]
     Active Substance: STAVUDINE
     Indication: CHRONIC HEPATITIS C
     Dosage: UNK UNK, UNKNOWN
     Route: 065
  31. METHADONE HYDROCHLORIDE. [Suspect]
     Active Substance: METHADONE HYDROCHLORIDE
     Indication: HIV INFECTION
     Dosage: UNK UNK, UNKNOWN
     Route: 048

REACTIONS (3)
  - Drug-induced liver injury [Recovered/Resolved]
  - Hepatic fibrosis [Unknown]
  - Off label use [Unknown]
